FAERS Safety Report 24080485 (Version 1)
Quarter: 2024Q3

REPORT INFORMATION
  Report Type: Spontaneous
  Country: US (occurrence: US)
  Receive Date: 20240711
  Receipt Date: 20240711
  Transmission Date: 20241017
  Serious: No
  Sender: EISAI
  Company Number: US-Eisai-EC-2024-167383

PATIENT
  Age: 34 Year
  Sex: Male

DRUGS (6)
  1. PERAMPANEL [Suspect]
     Active Substance: PERAMPANEL
     Indication: Epilepsy
     Route: 041
  2. PERAMPANEL [Suspect]
     Active Substance: PERAMPANEL
     Route: 041
  3. PERAMPANEL [Suspect]
     Active Substance: PERAMPANEL
     Route: 041
  4. ZONISAMIDE [Concomitant]
     Active Substance: ZONISAMIDE
  5. LAMOTRIGINE [Concomitant]
     Active Substance: LAMOTRIGINE
  6. LACOSAMIDE [Concomitant]
     Active Substance: LACOSAMIDE

REACTIONS (1)
  - Agitation [Recovering/Resolving]
